FAERS Safety Report 7482341-7 (Version None)
Quarter: 2011Q2

REPORT INFORMATION
  Report Type: 
  Country: None (occurrence: None)
  Receive Date: 20110516
  Receipt Date: 20110506
  Transmission Date: 20111010
  Serious: Yes (Other)
  Sender: FDA-Public Use
  Company Number: US-PFIZER INC-2011098352

PATIENT
  Sex: Female
  Weight: 58.05 kg

DRUGS (7)
  1. VICODIN [Concomitant]
     Dosage: UNK
  2. SEROQUEL [Suspect]
     Dosage: 200 MG
  3. FENTANYL [Concomitant]
     Dosage: 75 MG, UNK
  4. PRISTIQ [Suspect]
     Indication: DEPRESSION
  5. ESTRIOL [Concomitant]
     Dosage: 1 MG, UNK
  6. PRISTIQ [Suspect]
     Indication: MALAISE
     Dosage: 50 MG, 1X/DAY
     Route: 048
     Dates: start: 20110425
  7. LOPRESSOR [Suspect]

REACTIONS (3)
  - URTICARIA [None]
  - DEPRESSION [None]
  - SEROTONIN SYNDROME [None]
